FAERS Safety Report 6198283-3 (Version None)
Quarter: 2009Q2

REPORT INFORMATION
  Report Type: 
  Country: None (occurrence: None)
  Receive Date: 20090521
  Receipt Date: 20090513
  Transmission Date: 20091009
  Serious: Yes (Hospitalization)
  Sender: FDA-Public Use
  Company Number: JP-B.I. PHARMACEUTICALS,INC./RIDGEFIELD-2009-DE-03777GD

PATIENT
  Age: 76 Year
  Sex: Female

DRUGS (1)
  1. MELOXICAM [Suspect]
     Indication: ARTHRALGIA

REACTIONS (5)
  - ANAEMIA [None]
  - ENTERITIS [None]
  - GASTROINTESTINAL HAEMORRHAGE [None]
  - INTESTINAL ULCER [None]
  - MALAISE [None]
